FAERS Safety Report 6357374-4 (Version None)
Quarter: 2009Q3

REPORT INFORMATION
  Report Type: 
  Country: None (occurrence: None)
  Receive Date: 20090916
  Receipt Date: 20070925
  Transmission Date: 20100115
  Serious: Yes (Other)
  Sender: FDA-Public Use
  Company Number: US-ASTRAZENECA-2006UW22885

PATIENT
  Age: 18229 Day
  Sex: Male
  Weight: 104.3 kg

DRUGS (15)
  1. SEROQUEL [Suspect]
     Indication: BIPOLAR DISORDER
     Route: 048
     Dates: start: 20040301, end: 20060322
  2. SEROQUEL [Suspect]
     Dosage: 100 - 300 MG
     Route: 048
     Dates: start: 20041026
  3. SYNTHROID [Concomitant]
     Indication: HYPOTHYROIDISM
     Dosage: 0.05 - 0.15 MG
     Route: 048
     Dates: start: 20041026
  4. EFFEXOR [Concomitant]
     Route: 048
     Dates: start: 20041006
  5. VALIUM [Concomitant]
     Route: 048
     Dates: start: 20041006
  6. LITHIUM CARBONATE [Concomitant]
     Dosage: 300 - 600 MG
     Route: 048
     Dates: start: 20041105
  7. BENZTROPINE MESYLATE [Concomitant]
     Route: 048
     Dates: start: 20041105
  8. HALOPERIDOL [Concomitant]
     Route: 048
     Dates: start: 20041108
  9. WELLBUTRIN XL [Concomitant]
     Route: 048
     Dates: start: 20041213
  10. REMERON [Concomitant]
     Route: 048
     Dates: start: 20041213
  11. GABAPENTIN [Concomitant]
     Route: 048
     Dates: start: 20071019
  12. LYRICA [Concomitant]
     Route: 048
     Dates: start: 20071019
  13. PREVACID [Concomitant]
     Route: 048
     Dates: start: 20071019
  14. LIPITOR [Concomitant]
     Route: 048
     Dates: start: 20071019
  15. ATIVAN [Concomitant]
     Indication: ANXIETY
     Route: 048
     Dates: start: 20060103

REACTIONS (8)
  - DIABETES MELLITUS [None]
  - INSOMNIA [None]
  - MYOCARDIAL INFARCTION [None]
  - NEUROPATHY PERIPHERAL [None]
  - SLEEP DISORDER [None]
  - SUICIDAL BEHAVIOUR [None]
  - SUICIDE ATTEMPT [None]
  - TYPE 2 DIABETES MELLITUS [None]
